FAERS Safety Report 11375089 (Version 1)
Quarter: 2015Q3

REPORT INFORMATION
  Report Type: Spontaneous
  Country: CN (occurrence: CN)
  Receive Date: 20150813
  Receipt Date: 20150813
  Transmission Date: 20151125
  Serious: Yes (Other)
  Sender: FDA-Public Use
  Company Number: CN-BAYER-2015-393884

PATIENT
  Sex: Male

DRUGS (1)
  1. NEXAVAR [Suspect]
     Active Substance: SORAFENIB
     Dosage: UNK
     Route: 048
     Dates: start: 201507

REACTIONS (4)
  - Musculoskeletal disorder [None]
  - Blister [None]
  - Peripheral swelling [None]
  - Gait disturbance [None]

NARRATIVE: CASE EVENT DATE: 2015
